FAERS Safety Report 8488337-0 (Version None)
Quarter: 2012Q3

REPORT INFORMATION
  Report Type: 
  Country: None (occurrence: None)
  Receive Date: 20120705
  Receipt Date: 20120626
  Transmission Date: 20120928
  Serious: Yes (Hospitalization, Other)
  Sender: FDA-Public Use
  Company Number: CA-JNJFOC-20120610576

PATIENT
  Sex: Female
  Weight: 59 kg

DRUGS (4)
  1. REMICADE [Suspect]
     Route: 042
     Dates: start: 20050101
  2. REMICADE [Suspect]
     Route: 042
     Dates: start: 20120425
  3. REMICADE [Suspect]
     Indication: CROHN'S DISEASE
     Route: 042
     Dates: start: 20041201
  4. IMURAN [Concomitant]
     Dosage: 2 TABS DAILY
     Route: 048

REACTIONS (4)
  - DIZZINESS [None]
  - DIARRHOEA [None]
  - VIRAL INFECTION [None]
  - ASTHENIA [None]
